FAERS Safety Report 7297937-5 (Version None)
Quarter: 2011Q1

REPORT INFORMATION
  Report Type: 
  Country: None (occurrence: None)
  Receive Date: 20110217
  Receipt Date: 20110214
  Transmission Date: 20110831
  Serious: Yes (Life-Threatening, Hospitalization)
  Sender: FDA-Public Use
  Company Number: ES-JNJFOC-20110204683

PATIENT
  Age: 68 Year
  Sex: Female
  Weight: 82 kg

DRUGS (6)
  1. ISODIUR [Concomitant]
     Indication: HYPERTENSION
     Route: 048
  2. CARDURA [Concomitant]
     Indication: HYPERTENSION
     Route: 048
  3. METFORMIN HCL [Concomitant]
     Indication: DIABETES MELLITUS
     Route: 048
  4. PREVENCOR [Concomitant]
     Indication: HYPERLIPIDAEMIA
     Route: 048
  5. GOLIMUMAB [Suspect]
     Indication: RHEUMATOID ARTHRITIS
     Route: 058
  6. ARAVA [Concomitant]
     Indication: RHEUMATOID ARTHRITIS
     Route: 048

REACTIONS (1)
  - METASTASES TO CENTRAL NERVOUS SYSTEM [None]
